FAERS Safety Report 8661262 (Version 2)
Quarter: 2013Q4

REPORT INFORMATION
  Report Type: Report from Study
  Country: FR (occurrence: BR)
  Receive Date: 20120712
  Receipt Date: 20131101
  Transmission Date: 20140711
  Serious: Yes (Hospitalization, Other)
  Sender: FDA-Public Use
  Company Number: FR-009507513-1104FRA00046

PATIENT
  Age: 28 Year
  Sex: Male
  Weight: 63 kg

DRUGS (6)
  1. RALTEGRAVIR POTASSIUM [Suspect]
     Dosage: 800 MG, BID
     Route: 048
     Dates: start: 20110324
  2. EPIVIR [Suspect]
     Indication: HIV INFECTION
     Dosage: 300 MG, QD
     Route: 048
     Dates: start: 20110324
  3. VIREAD [Suspect]
     Indication: HIV INFECTION
     Dosage: 300 MG, QD
     Route: 048
     Dates: start: 20110324
  4. ISONIAZID [Concomitant]
     Indication: TUBERCULOSIS
     Dosage: 400 MG, QD
     Route: 048
     Dates: start: 20110217
  5. RIFAMPIN [Concomitant]
     Indication: TUBERCULOSIS
     Dosage: 600 MG, QD
     Route: 048
     Dates: start: 20110217
  6. PYRAZINAMIDE [Concomitant]
     Indication: TUBERCULOSIS
     Dosage: 1600 MG, QD
     Route: 048
     Dates: start: 20110217

REACTIONS (2)
  - Pyrexia [Recovered/Resolved]
  - Weight decreased [Recovered/Resolved]
